FAERS Safety Report 22886546 (Version 3)
Quarter: 2024Q2

REPORT INFORMATION
  Report Type: Spontaneous
  Country: US (occurrence: US)
  Receive Date: 20230831
  Receipt Date: 20240425
  Transmission Date: 20240716
  Serious: Yes (Other)
  Sender: FDA-Public Use
  Company Number: US-JNJFOC-20230854723

PATIENT
  Age: 71 Year
  Sex: Male

DRUGS (4)
  1. RYBREVANT [Suspect]
     Active Substance: AMIVANTAMAB-VMJW
     Indication: Non-small cell lung cancer
     Route: 042
     Dates: start: 20230531
  2. PREDNISONE [Concomitant]
     Active Substance: PREDNISONE
     Route: 065
  3. XGEVA [Concomitant]
     Active Substance: DENOSUMAB
     Indication: Metastases to bone
  4. ATENOLOL [Concomitant]
     Active Substance: ATENOLOL
     Route: 065

REACTIONS (20)
  - Choking [Unknown]
  - Thrombosis [Unknown]
  - Pulmonary oedema [Unknown]
  - Generalised oedema [Unknown]
  - Dyspnoea [Unknown]
  - Gait disturbance [Unknown]
  - Onychoclasis [Unknown]
  - Staphylococcal skin infection [Unknown]
  - Scar [Unknown]
  - Visual impairment [Unknown]
  - Off label use [Unknown]
  - Unevaluable event [Unknown]
  - Infusion related reaction [Recovered/Resolved]
  - Staphylococcal infection [Unknown]
  - Swelling face [Unknown]
  - Peripheral swelling [Unknown]
  - Dermatitis acneiform [Unknown]
  - Pain in extremity [Unknown]
  - Decreased appetite [Unknown]
  - Dyspepsia [Unknown]

NARRATIVE: CASE EVENT DATE: 20230531
